FAERS Safety Report 9050343 (Version 1)
Quarter: 2013Q1

REPORT INFORMATION
  Report Type: Report from Study
  Country: CA (occurrence: CA)
  Receive Date: 20130205
  Receipt Date: 20130205
  Transmission Date: 20140127
  Serious: Yes (Other)
  Sender: FDA-Public Use
  Company Number: CA-JNJFOC-20130115712

PATIENT
  Sex: Female
  Weight: 51.8 kg

DRUGS (9)
  1. REMICADE [Suspect]
     Indication: CROHN^S DISEASE
     Route: 042
     Dates: start: 20110309
  2. EFFEXOR [Concomitant]
     Route: 065
  3. BUPROPION [Concomitant]
     Route: 065
  4. WELLBUTRIN  XL [Concomitant]
     Route: 065
  5. MAXALT [Concomitant]
     Route: 065
  6. CYCLOBENZAPRINE [Concomitant]
     Route: 065
  7. SEROQUEL [Concomitant]
     Route: 065
  8. ALL OTHER THERAPEUTIC PRODUCTS [Concomitant]
     Route: 065
  9. CALCIUM [Concomitant]
     Route: 065

REACTIONS (2)
  - Cervix carcinoma [Unknown]
  - Urinary tract infection [Unknown]
